FAERS Safety Report 26012527 (Version 1)
Quarter: 2025Q4

REPORT INFORMATION
  Report Type: Report from Study
  Country: US (occurrence: US)
  Receive Date: 20251107
  Receipt Date: 20251107
  Transmission Date: 20260118
  Serious: Yes (Other)
  Sender: TAKEDA
  Company Number: US-TAKEDA-2025TUS068834

PATIENT
  Age: 50 Year
  Sex: Female

DRUGS (2)
  1. MARIBAVIR [Suspect]
     Active Substance: MARIBAVIR
     Indication: Post procedural complication
     Dosage: 800 MILLIGRAM, QD
  2. MARIBAVIR [Suspect]
     Active Substance: MARIBAVIR
     Indication: Complications of transplanted lung
     Dosage: 400 MILLIGRAM, BID
     Dates: start: 20250718

REACTIONS (5)
  - Pneumonia bacterial [Unknown]
  - Product dose omission issue [Unknown]
  - Incorrect dose administered [Unknown]
  - Product after taste [Unknown]
  - Ageusia [Unknown]
